FAERS Safety Report 8841780 (Version 1)
Quarter: 2012Q4

REPORT INFORMATION
  Report Type: 
  Country: FR (occurrence: FR)
  Receive Date: 20121016
  Receipt Date: 20121016
  Transmission Date: 20130627
  Serious: Yes (Death)
  Sender: FDA-Public Use
  Company Number: FR-009507513-1210FRA006457

PATIENT
  Sex: Male

DRUGS (2)
  1. EMEND [Suspect]
     Indication: PRURITUS
  2. TARGRETIN [Concomitant]

REACTIONS (2)
  - Renal impairment [Fatal]
  - Death [Fatal]
